FAERS Safety Report 7983345-8 (Version None)
Quarter: 2011Q4

REPORT INFORMATION
  Report Type: 
  Country: None (occurrence: None)
  Receive Date: 20111215
  Receipt Date: 20111201
  Transmission Date: 20120403
  Serious: Yes (Hospitalization)
  Sender: FDA-Public Use
  Company Number: NL-MEDIMMUNE-MEDI-0014100

PATIENT
  Sex: Female
  Weight: 6.12 kg

DRUGS (3)
  1. SPIRONOLACTONE [Concomitant]
  2. FUROSEMIDE [Concomitant]
  3. SYNAGIS [Suspect]
     Route: 030
     Dates: start: 20110908, end: 20111103

REACTIONS (2)
  - WEIGHT DECREASED [None]
  - FLUID INTAKE REDUCED [None]
